FAERS Safety Report 10068011 (Version 4)
Quarter: 2015Q1

REPORT INFORMATION
  Report Type: Report from Study
  Country: US (occurrence: US)
  Receive Date: 20140409
  Receipt Date: 20150105
  Transmission Date: 20150720
  Serious: Yes (Hospitalization, Other)
  Sender: FDA-Public Use
  Company Number: US-SA-2014SA039836

PATIENT
  Age: 60 Year
  Sex: Female

DRUGS (12)
  1. OXYBUTYNIN [Concomitant]
     Active Substance: OXYBUTYNIN
  2. PROTONIX [Concomitant]
     Active Substance: PANTOPRAZOLE SODIUM
  3. AUBAGIO [Suspect]
     Active Substance: TERIFLUNOMIDE
     Indication: MULTIPLE SCLEROSIS
     Route: 048
     Dates: start: 20130607
  4. LYRICA [Concomitant]
     Active Substance: PREGABALIN
  5. BACLOFEN. [Concomitant]
     Active Substance: BACLOFEN
  6. CLONAZEPAM. [Concomitant]
     Active Substance: CLONAZEPAM
  7. VITAMIN D3 [Concomitant]
     Active Substance: CHOLECALCIFEROL
  8. GABAPENTIN. [Concomitant]
     Active Substance: GABAPENTIN
     Route: 048
  9. SENNA [Concomitant]
     Active Substance: SENNA LEAF\SENNOSIDES\SENNOSIDES A AND B
     Dosage: DOSE:2 UNIT(S)
     Route: 048
  10. NASONEX [Concomitant]
     Active Substance: MOMETASONE FUROATE
     Dosage: DOSE:2 PUFF(S)
     Route: 045
  11. LIPITOR [Concomitant]
     Active Substance: ATORVASTATIN CALCIUM
  12. LEVOTHYROXINE [Concomitant]
     Active Substance: LEVOTHYROXINE

REACTIONS (13)
  - Cold sweat [Unknown]
  - Dizziness [Unknown]
  - Syncope [Recovering/Resolving]
  - Cardiac disorder [Unknown]
  - Drug dose omission [Unknown]
  - Limb discomfort [Unknown]
  - Weight decreased [Unknown]
  - Hypoaesthesia [Unknown]
  - Paraesthesia [Unknown]
  - Supraventricular tachycardia [Recovering/Resolving]
  - Cardiac ablation [Unknown]
  - Loss of control of legs [Unknown]
  - Posture abnormal [Unknown]

NARRATIVE: CASE EVENT DATE: 20140328
